FAERS Safety Report 9818677 (Version 3)
Quarter: 2014Q1

REPORT INFORMATION
  Report Type: Spontaneous
  Country: DE (occurrence: DE)
  Receive Date: 20140115
  Receipt Date: 20140204
  Transmission Date: 20141002
  Serious: Yes (Life-Threatening)
  Sender: FDA-Public Use
  Company Number: DE-PFIZER INC-2014007836

PATIENT
  Age: 79 Year
  Sex: Female
  Weight: 60 kg

DRUGS (7)
  1. REVATIO [Suspect]
     Indication: PULMONARY ARTERIAL HYPERTENSION
     Dosage: 20 MG, 3X/DAY
     Route: 048
  2. MARCUMAR [Suspect]
     Dosage: 0.5 DF, 1X/DAY
     Route: 048
  3. METOPROLOL [Concomitant]
     Dosage: UNK
  4. AMLODIPINE [Concomitant]
     Dosage: UNK
  5. SIMVASTATIN [Concomitant]
     Dosage: 40 MG, 1X/DAY, IN THE EVENING
  6. XIPAMID [Concomitant]
     Dosage: UNK
  7. METFORMIN [Concomitant]
     Dosage: UNK

REACTIONS (1)
  - International normalised ratio increased [Recovered/Resolved]
